FAERS Safety Report 15084642 (Version 1)
Quarter: 2018Q2

REPORT INFORMATION
  Report Type: Spontaneous
  Country: FR (occurrence: FR)
  Receive Date: 20180628
  Receipt Date: 20180628
  Transmission Date: 20180711
  Serious: Yes (Death)
  Sender: FDA-Public Use
  Company Number: FR-TEVA-2018-FR-913206

PATIENT
  Age: 22 Year
  Sex: Female

DRUGS (5)
  1. NORDAZEPAM [Suspect]
     Active Substance: NORDAZEPAM
     Indication: PRODUCT USED FOR UNKNOWN INDICATION
     Dosage: NON RENSEIGN?E
     Route: 065
  2. CITALOPRAM (BROMHYDRATE DE) [Suspect]
     Active Substance: CITALOPRAM HYDROBROMIDE
     Indication: PRODUCT USED FOR UNKNOWN INDICATION
     Dosage: NON RENSEIGN?E
     Route: 065
  3. HYDROXYZINE (CHLORHYDRATE D^) [Suspect]
     Active Substance: HYDROXYZINE HYDROCHLORIDE
     Indication: PRODUCT USED FOR UNKNOWN INDICATION
     Dosage: NON RENSEIGN?E
     Route: 065
  4. OXYCODONE [Suspect]
     Active Substance: OXYCODONE
     Indication: PRODUCT USED FOR UNKNOWN INDICATION
     Dosage: NON RENSEIGN?E
     Route: 045
  5. OXAZEPAM. [Suspect]
     Active Substance: OXAZEPAM
     Indication: PRODUCT USED FOR UNKNOWN INDICATION
     Dosage: NON RENSEIGN?E
     Route: 065

REACTIONS (1)
  - Drug abuse [Fatal]
